FAERS Safety Report 8382295-5 (Version None)
Quarter: 2012Q2

REPORT INFORMATION
  Report Type: 
  Country: None (occurrence: None)
  Receive Date: 20120524
  Receipt Date: 20120510
  Transmission Date: 20120825
  Serious: No
  Sender: FDA-Public Use
  Company Number: US-B.I. PHARMACEUTICALS,INC./RIDGEFIELD-2011-BP-28699BP

PATIENT
  Sex: Male

DRUGS (16)
  1. LISINOPRIL [Concomitant]
     Indication: CARDIAC FAILURE
  2. LASIX [Concomitant]
     Indication: CARDIAC FAILURE
  3. HUMULIN 70/30 [Concomitant]
     Indication: DIABETES MELLITUS
  4. AMBIEN [Concomitant]
     Indication: INSOMNIA
  5. PRAVACHOL [Concomitant]
     Indication: BLOOD CHOLESTEROL INCREASED
  6. CATAPRES [Concomitant]
     Indication: HYPERTENSION
     Route: 048
     Dates: start: 20060101
  7. CATAPRES-TTS-1 [Suspect]
     Indication: HYPERTENSION
     Dosage: 0.6 MG
     Route: 061
     Dates: start: 20060101
  8. PRAVASTATIN [Concomitant]
     Indication: BLOOD CHOLESTEROL INCREASED
  9. VALIUM [Concomitant]
  10. ZAROXOLYN [Concomitant]
     Indication: CARDIAC FAILURE
  11. NASACORT [Concomitant]
  12. BYETTA [Concomitant]
     Indication: DIABETES MELLITUS
  13. REGULAR INSULIN [Concomitant]
     Indication: DIABETES MELLITUS
  14. CLONIDINE [Concomitant]
     Indication: HYPERTENSION
  15. INSPRA [Concomitant]
     Indication: CARDIAC FAILURE
  16. TRAZODONE HCL [Concomitant]
     Indication: INSOMNIA

REACTIONS (4)
  - BLOOD PRESSURE SYSTOLIC INCREASED [None]
  - BLOOD PRESSURE INCREASED [None]
  - EAR INFECTION [None]
  - VERTIGO [None]
